FAERS Safety Report 8583069-2 (Version None)
Quarter: 2012Q3

REPORT INFORMATION
  Report Type: 
  Country: None (occurrence: None)
  Receive Date: 20120809
  Receipt Date: 20120806
  Transmission Date: 20120928
  Serious: Yes (Death, Hospitalization, Other)
  Sender: FDA-Public Use
  Company Number: US-BAXTER-2012BAX013906

PATIENT
  Age: 70 Year
  Sex: Male

DRUGS (13)
  1. PREDNISONE TAB [Concomitant]
     Route: 048
  2. OXACILLIN [Concomitant]
  3. VANCOMYCIN [Suspect]
     Route: 042
  4. NIFEDIPINE [Concomitant]
     Indication: HYPERTENSION
  5. METRONIDAZOLE [Concomitant]
  6. OFLOXACIN [Concomitant]
  7. RIFAMPIN [Concomitant]
  8. VANCOMYCIN [Suspect]
     Route: 042
  9. FAMOTIDINE [Concomitant]
  10. GENTAMICIN [Concomitant]
  11. VANCOMYCIN [Suspect]
     Route: 042
  12. CEFTRIAXONE [Concomitant]
  13. METHYLPREDNISOLONE [Concomitant]
     Dosage: TAPERING DOSES

REACTIONS (2)
  - TOXIC EPIDERMAL NECROLYSIS [None]
  - TUBULOINTERSTITIAL NEPHRITIS [None]
